FAERS Safety Report 20011697 (Version 5)
Quarter: 2022Q4

REPORT INFORMATION
  Report Type: Spontaneous
  Country: US (occurrence: US)
  Receive Date: 20211029
  Receipt Date: 20221014
  Transmission Date: 20230113
  Serious: Yes (Death, Hospitalization, Other)
  Sender: FDA-Public Use
  Company Number: US-PFIZER INC-202101382590

PATIENT
  Age: 84 Year
  Sex: Male

DRUGS (1)
  1. VFEND [Suspect]
     Active Substance: VORICONAZOLE
     Indication: Antifungal treatment
     Dosage: 200 MG, 2X/DAY (30 DAY SUPPLY, QUANTITY: 60)
     Route: 048

REACTIONS (6)
  - Leukaemia [Fatal]
  - Sepsis [Fatal]
  - Localised infection [Unknown]
  - Pyrexia [Unknown]
  - Infection [Unknown]
  - Hypoacusis [Unknown]
